FAERS Safety Report 8769839 (Version 2)
Quarter: 2013Q4

REPORT INFORMATION
  Report Type: Spontaneous
  Country: DE (occurrence: DE)
  Receive Date: 20120905
  Receipt Date: 20131031
  Transmission Date: 20140711
  Serious: Yes (Other)
  Sender: FDA-Public Use
  Company Number: DE-009507513-1208DEU012394

PATIENT
  Sex: Female

DRUGS (1)
  1. INEGY 10 MG/10 MG, COMPRIM?S [Suspect]
     Indication: HYPERCHOLESTEROLAEMIA
     Dosage: 10/10 MG, QD
     Route: 048
     Dates: start: 201108

REACTIONS (1)
  - Basal cell carcinoma [Not Recovered/Not Resolved]
